FAERS Safety Report 10089702 (Version 1)
Quarter: 2014Q2

REPORT INFORMATION
  Report Type: Spontaneous
  Country: US (occurrence: US)
  Receive Date: 20140421
  Receipt Date: 20140421
  Transmission Date: 20141212
  Serious: No
  Sender: FDA-Public Use
  Company Number: US-PFIZER INC-2014108643

PATIENT
  Age: 83 Year
  Sex: Female
  Weight: 49.43 kg

DRUGS (1)
  1. ESTRING [Suspect]
     Indication: DYSURIA
     Dosage: UNK
     Route: 067
     Dates: start: 2004

REACTIONS (1)
  - Malaise [Unknown]
